FAERS Safety Report 15687900 (Version 1)
Quarter: 2018Q4

REPORT INFORMATION
  Report Type: Spontaneous
  Country: US (occurrence: US)
  Receive Date: 20181205
  Receipt Date: 20181205
  Transmission Date: 20190205
  Serious: Yes (Hospitalization, Other)
  Sender: FDA-Public Use
  Company Number: US-ROCHE-2034774

PATIENT
  Age: 38 Year
  Sex: Male

DRUGS (1)
  1. ACTIVASE [Suspect]
     Active Substance: ALTEPLASE
     Indication: ISCHAEMIC STROKE
     Route: 065
     Dates: start: 20171025

REACTIONS (2)
  - Haemorrhage intracranial [Unknown]
  - Haematoma [Unknown]

NARRATIVE: CASE EVENT DATE: 20171025
